FAERS Safety Report 5908930-6 (Version None)
Quarter: 2008Q4

REPORT INFORMATION
  Report Type: 
  Country: None (occurrence: None)
  Receive Date: 20081006
  Receipt Date: 20081001
  Transmission Date: 20090506
  Serious: Yes (Other)
  Sender: FDA-Public Use
  Company Number: US-ELI_LILLY_AND_COMPANY-US200810000370

PATIENT
  Sex: Female

DRUGS (11)
  1. HUMALOG [Suspect]
     Dosage: UNK, AS NEEDED
  2. HUMULIN 70/30 [Suspect]
     Dosage: UNK, UNK
     Dates: start: 20030101
  3. PLAVIX [Concomitant]
     Dosage: UNK, UNK
     Dates: start: 20070101
  4. VITAMIN D [Concomitant]
     Dosage: UNK, UNK
     Dates: start: 20070101
  5. COREG [Concomitant]
  6. DIGOXIN [Concomitant]
  7. VITAMIN B [Concomitant]
  8. MULTI-VITAMINS [Concomitant]
  9. ZETIA [Concomitant]
  10. ASPIRIN [Concomitant]
  11. LEXAPRO [Concomitant]

REACTIONS (4)
  - CEREBROVASCULAR ACCIDENT [None]
  - MEMORY IMPAIRMENT [None]
  - SPEECH DISORDER [None]
  - VASCULAR GRAFT [None]
